FAERS Safety Report 5911527-5 (Version None)
Quarter: 2008Q4

REPORT INFORMATION
  Report Type: 
  Country: None (occurrence: None)
  Receive Date: 20081002
  Receipt Date: 20080929
  Transmission Date: 20090506
  Serious: Yes (Hospitalization)
  Sender: FDA-Public Use
  Company Number: 1000001135

PATIENT
  Age: 40 Year
  Sex: Female

DRUGS (3)
  1. LEXAPRO [Suspect]
     Dosage: ORAL
     Route: 048
  2. ULTRAM [Suspect]
     Indication: RHEUMATOID ARTHRITIS
     Dates: end: 20080801
  3. ALCOHOL [Suspect]

REACTIONS (1)
  - CONVULSION [None]
